FAERS Safety Report 6123555-8 (Version None)
Quarter: 2009Q1

REPORT INFORMATION
  Report Type: 
  Country: None (occurrence: None)
  Receive Date: 20090319
  Receipt Date: 20090306
  Transmission Date: 20090719
  Serious: Yes (Other)
  Sender: FDA-Public Use
  Company Number: GB-RANBAXY-2009RR-22484

PATIENT
  Age: 67 Year
  Sex: Female

DRUGS (7)
  1. ATENOLOL [Suspect]
  2. IMIDAPRIL [Concomitant]
     Dosage: UNK
  3. THYROXINE [Concomitant]
  4. PREDNISOLONE [Concomitant]
     Dosage: 30 MG, QD
  5. PREDNISOLONE [Concomitant]
     Dosage: 7.5 MG, QD
  6. HYDROXYCHLOROQUINE [Concomitant]
     Dosage: 200 MG, BID
  7. HYDROXYCHLOROQUINE [Concomitant]
     Dosage: 200 MG, QD

REACTIONS (1)
  - SYSTEMIC LUPUS ERYTHEMATOSUS [None]
